FAERS Safety Report 17226718 (Version 1)
Quarter: 2020Q1

REPORT INFORMATION
  Report Type: Other
  Country: US (occurrence: US)
  Receive Date: 20200102
  Receipt Date: 20200102
  Transmission Date: 20200409
  Serious: Yes (Life-Threatening, Hospitalization)
  Sender: FDA-Public Use
  Company Number: US-NOSTRUM LABORATORIES, INC.-2078453

PATIENT
  Age: 88 Year
  Sex: Female

DRUGS (2)
  1. CLARITHROMYCIN EXTENDED RELEASE [Suspect]
     Active Substance: CLARITHROMYCIN
     Indication: BRONCHITIS
     Route: 048
  2. NIFEDIPINE EXTENDED-RELEASE [Interacting]
     Active Substance: NIFEDIPINE
     Route: 048

REACTIONS (6)
  - Acute kidney injury [Recovered/Resolved with Sequelae]
  - Bradycardia [Recovered/Resolved]
  - Acute pulmonary oedema [Recovered/Resolved]
  - Hyperkalaemia [Recovered/Resolved]
  - Hypotension [Recovered/Resolved]
  - Drug interaction [Recovered/Resolved]
